FAERS Safety Report 8402281-6 (Version None)
Quarter: 2012Q2

REPORT INFORMATION
  Report Type: 
  Country: None (occurrence: None)
  Receive Date: 20120601
  Receipt Date: 20120523
  Transmission Date: 20120825
  Serious: Yes (Disabling)
  Sender: FDA-Public Use
  Company Number: GB-SANOFI-AVENTIS-2012SA036439

PATIENT
  Age: 67 Year
  Sex: Male
  Weight: 75.2 kg

DRUGS (13)
  1. BETAHISTINE [Concomitant]
     Route: 065
     Dates: start: 20120208, end: 20120307
  2. ATORVASTATIN CALCIUM [Concomitant]
     Dates: start: 20120220, end: 20120412
  3. CALCICHEW D3 [Concomitant]
     Dates: start: 20120220, end: 20120412
  4. LAMOTRIGINE [Concomitant]
     Dates: start: 20120220, end: 20120418
  5. FLUTICASONE PROPIONATE/SALMETEROL [Concomitant]
     Dates: start: 20120220, end: 20120412
  6. CITALOPRAM HYDROBROMIDE [Concomitant]
     Dates: start: 20120220, end: 20120412
  7. ACETAMINOPHEN [Concomitant]
     Dates: start: 20120508, end: 20120509
  8. OMEPRAZOLE [Concomitant]
     Dates: start: 20120220, end: 20120412
  9. ASPIRIN [Concomitant]
     Dates: start: 20120426
  10. FOLIC ACID [Concomitant]
     Dates: start: 20120508
  11. CLOPIDOGREL BISULFATE [Suspect]
     Route: 065
     Dates: start: 20120220
  12. DESMOPRESSIN ACETATE [Concomitant]
     Dates: start: 20120110
  13. PERSANTINE [Concomitant]
     Dates: start: 20120426

REACTIONS (2)
  - CONVULSION [None]
  - DROP ATTACKS [None]
